FAERS Safety Report 5220881-1 (Version None)
Quarter: 2007Q1

REPORT INFORMATION
  Report Type: 
  Country: None (occurrence: None)
  Receive Date: 20070126
  Receipt Date: 20070125
  Transmission Date: 20070707
  Serious: Yes (Other)
  Sender: FDA-Public Use
  Company Number: GXKR2006BR02379

PATIENT
  Age: 8 Year
  Sex: Male
  Weight: 22 kg

DRUGS (1)
  1. AMOXICILLIN + CLAVULANATE K [Suspect]
     Indication: PHARYNGITIS
     Dosage: 250MG TWICE PER DAY
     Route: 048
     Dates: start: 20060413, end: 20060417

REACTIONS (3)
  - CONDITION AGGRAVATED [None]
  - DRUG INEFFECTIVE [None]
  - PNEUMONIA [None]
